FAERS Safety Report 5541907-1 (Version None)
Quarter: 2007Q4

REPORT INFORMATION
  Report Type: 
  Country: None (occurrence: None)
  Receive Date: 20071210
  Receipt Date: 20071126
  Transmission Date: 20080405
  Serious: Yes (Hospitalization)
  Sender: FDA-Public Use
  Company Number: US-AMGEN-US203412

PATIENT
  Sex: Female
  Weight: 52.2 kg

DRUGS (10)
  1. PANITUMUMAB [Suspect]
     Indication: COLORECTAL CANCER
     Route: 042
     Dates: start: 20060706, end: 20061129
  2. FLUOROURACIL [Suspect]
     Route: 042
  3. LEUCOVORIN CALCIUM [Suspect]
     Route: 042
  4. OXALIPLATIN [Suspect]
     Route: 042
  5. AVASTIN [Concomitant]
     Route: 042
  6. COUMADIN [Concomitant]
     Route: 065
  7. WELLBUTRIN [Concomitant]
     Route: 065
  8. ATIVAN [Concomitant]
     Route: 065
  9. NEUPOGEN [Concomitant]
     Route: 065
  10. PROCRIT [Concomitant]
     Route: 065

REACTIONS (3)
  - DEHYDRATION [None]
  - HYPOKALAEMIA [None]
  - PYREXIA [None]
